FAERS Safety Report 7739880-0 (Version None)
Quarter: 2011Q3

REPORT INFORMATION
  Report Type: 
  Country: None (occurrence: None)
  Receive Date: 20110909
  Receipt Date: 20110901
  Transmission Date: 20111222
  Serious: Yes (Hospitalization)
  Sender: FDA-Public Use
  Company Number: PHEH2011US03314

PATIENT
  Sex: Female

DRUGS (2)
  1. TOBI [Suspect]
     Indication: LUNG INFECTION PSEUDOMONAL
     Dosage: 300 MG, BID
     Dates: start: 20110401
  2. TOBI [Suspect]
     Dosage: UNK
     Dates: start: 20110812

REACTIONS (2)
  - LUNG INFECTION PSEUDOMONAL [None]
  - DISEASE RECURRENCE [None]
